FAERS Safety Report 16110641 (Version 5)
Quarter: 2020Q2

REPORT INFORMATION
  Report Type: Spontaneous
  Country: DE (occurrence: DE)
  Receive Date: 20190325
  Receipt Date: 20200520
  Transmission Date: 20200713
  Serious: Yes (Hospitalization, Other)
  Sender: FDA-Public Use
  Company Number: DE-BAUSCH-BL-2019-008376

PATIENT
  Age: 76 Year
  Sex: Female
  Weight: 70 kg

DRUGS (7)
  1. PREDNISOLON [Suspect]
     Active Substance: PREDNISOLONE
     Indication: RHEUMATOID ARTHRITIS
     Route: 048
     Dates: start: 20091104
  2. TOCILIZUMAB. [Suspect]
     Active Substance: TOCILIZUMAB
     Dosage: PRE-FILLED SYRINGE
     Route: 058
     Dates: start: 20170303, end: 20171020
  3. TOCILIZUMAB. [Suspect]
     Active Substance: TOCILIZUMAB
     Dosage: PRE-FILLED SYRINGE
     Route: 058
     Dates: start: 20170120, end: 20170209
  4. TOCILIZUMAB. [Suspect]
     Active Substance: TOCILIZUMAB
     Dosage: PRE-FILLED SYRINGE
     Route: 058
     Dates: start: 20171103
  5. TOCILIZUMAB. [Suspect]
     Active Substance: TOCILIZUMAB
     Indication: RHEUMATOID ARTHRITIS
     Dosage: PRE-FILLED SYRINGE
     Route: 058
     Dates: start: 20160217, end: 20160217
  6. TOCILIZUMAB. [Suspect]
     Active Substance: TOCILIZUMAB
     Dosage: PRE-FILLED SYRINGE
     Route: 058
     Dates: start: 20160527, end: 20170113
  7. TOCILIZUMAB. [Suspect]
     Active Substance: TOCILIZUMAB
     Dosage: PRE-FILLED SYRINGE
     Route: 058
     Dates: start: 20170217, end: 20170224

REACTIONS (7)
  - Joint abscess [Unknown]
  - Nasopharyngitis [Unknown]
  - Rhinitis [Recovered/Resolved]
  - Nasopharyngitis [Recovered/Resolved]
  - Joint abscess [Recovered/Resolved]
  - Bleeding varicose vein [Recovered/Resolved]
  - Nasopharyngitis [Recovered/Resolved]

NARRATIVE: CASE EVENT DATE: 20160921
